FAERS Safety Report 8204760-3 (Version None)
Quarter: 2012Q1

REPORT INFORMATION
  Report Type: 
  Country: None (occurrence: None)
  Receive Date: 20120313
  Receipt Date: 20120312
  Transmission Date: 20120608
  Serious: Yes (Life-Threatening, Other)
  Sender: FDA-Public Use
  Company Number: US-BAYER-2012-024056

PATIENT
  Sex: Female

DRUGS (1)
  1. INTERFERON BETA-1B [Suspect]
     Indication: MULTIPLE SCLEROSIS
     Dosage: UNK
     Route: 058
     Dates: start: 20070307, end: 20110312

REACTIONS (4)
  - VITAMIN B12 DEFICIENCY [None]
  - PALPITATIONS [None]
  - VENTRICULAR TACHYCARDIA [None]
  - HEART RATE IRREGULAR [None]
